FAERS Safety Report 19889835 (Version 1)
Quarter: 2021Q3

REPORT INFORMATION
  Report Type: Spontaneous
  Country: US (occurrence: US)
  Receive Date: 20210928
  Receipt Date: 20210928
  Transmission Date: 20211014
  Serious: Yes (Hospitalization)
  Sender: FDA-Public Use
  Company Number: None

PATIENT
  Age: 66 Year
  Sex: Male

DRUGS (16)
  1. CARVEDILOL. [Concomitant]
     Active Substance: CARVEDILOL
     Dates: start: 20210827
  2. PANTOPRAZOLE [Concomitant]
     Active Substance: PANTOPRAZOLE
     Dates: start: 20210519
  3. ATROVASTATIN [Concomitant]
     Active Substance: ATORVASTATIN CALCIUM
     Dates: start: 20210815
  4. VITAMIN D [Concomitant]
     Active Substance: VITAMIN D NOS
     Dates: start: 20210210
  5. ABILIFY [Concomitant]
     Active Substance: ARIPIPRAZOLE
     Dates: start: 20210712
  6. METOPROL SUC [Concomitant]
     Dates: start: 20210527
  7. IRBESARTAN. [Concomitant]
     Active Substance: IRBESARTAN
     Dates: start: 20210510
  8. TRANYLCYPROM [Concomitant]
     Dates: start: 20210907
  9. AMLODIPINE [Concomitant]
     Active Substance: AMLODIPINE BESYLATE
     Dates: start: 20210920
  10. ALBUTEROL. [Concomitant]
     Active Substance: ALBUTEROL
     Dates: start: 20210510
  11. TALTZ [Suspect]
     Active Substance: IXEKIZUMAB
     Indication: PSORIASIS
     Dosage: ?          OTHER FREQUENCY:EVERY 2 WEEKS;?
     Route: 058
     Dates: start: 20210804
  12. QVAR REDIHA AER [Concomitant]
     Dates: start: 20210512
  13. AVAPRO [Concomitant]
     Active Substance: IRBESARTAN
     Dates: start: 20210617
  14. FUROSEMIDE. [Concomitant]
     Active Substance: FUROSEMIDE
     Dates: start: 20210924
  15. PLAVIX [Concomitant]
     Active Substance: CLOPIDOGREL BISULFATE
     Dates: start: 20210709
  16. DEXTROAMPHET SACCHARAT, AMPHET ASPARTATE, DEXTROAMPHET SULFATE AND AMPHET SULFAT [Concomitant]
     Active Substance: AMPHETAMINE ASPARTATE\AMPHETAMINE SULFATE\DEXTROAMPHETAMINE SACCHARATE\DEXTROAMPHETAMINE SULFATE
     Dates: start: 20210902

REACTIONS (1)
  - Cardiac disorder [None]
